FAERS Safety Report 4660961-2 (Version None)
Quarter: 2005Q2

REPORT INFORMATION
  Report Type: 
  Country: None (occurrence: None)
  Receive Date: 20050511
  Receipt Date: 20050425
  Transmission Date: 20051028
  Serious: No
  Sender: FDA-Public Use
  Company Number: 200511724BCC

PATIENT
  Age: 63 Year
  Sex: Male
  Weight: 88.4514 kg

DRUGS (1)
  1. ALEVE (CAPLET) [Suspect]
     Indication: ARTHRALGIA
     Dosage: 220 MG, QD, ORAL
     Route: 048
     Dates: start: 20050403, end: 20050414

REACTIONS (2)
  - EXTRASYSTOLES [None]
  - PALPITATIONS [None]
